FAERS Safety Report 14587021 (Version 1)
Quarter: 2018Q1

REPORT INFORMATION
  Report Type: Spontaneous
  Country: US (occurrence: US)
  Receive Date: 20180301
  Receipt Date: 20180301
  Transmission Date: 20180509
  Serious: Yes (Hospitalization)
  Sender: FDA-Public Use
  Company Number: US-BRAINTREE LABORATORIES-180111

PATIENT
  Age: 68 Year
  Sex: Male
  Weight: 86.18 kg

DRUGS (1)
  1. SUPREP BOWEL PREP [Suspect]
     Active Substance: MAGNESIUM SULFATE\POTASSIUM SULFATE\SODIUM SULFATE
     Indication: COLONOSCOPY
     Dosage: 1 X 6 OZ. BOTTLE
     Route: 048
     Dates: start: 20180225, end: 20180225

REACTIONS (13)
  - Hypoaesthesia [None]
  - Paraesthesia [None]
  - Fatigue [None]
  - Blood glucose abnormal [None]
  - Dizziness [None]
  - Palpitations [None]
  - Chest discomfort [None]
  - Anxiety [None]
  - Tremor [None]
  - Blood pressure increased [None]
  - Peripheral coldness [None]
  - Flushing [None]
  - Blood electrolytes abnormal [None]

NARRATIVE: CASE EVENT DATE: 20180225
